FAERS Safety Report 16082323 (Version 1)
Quarter: 2019Q1

REPORT INFORMATION
  Report Type: Spontaneous
  Country: US (occurrence: US)
  Receive Date: 20190318
  Receipt Date: 20190318
  Transmission Date: 20190418
  Serious: No
  Sender: FDA-Public Use
  Company Number: US-TRIS PHARMA, INC.-2019TRISPO00155

PATIENT

DRUGS (3)
  1. IBUPROFEN. [Suspect]
     Active Substance: IBUPROFEN
     Indication: TOOTHACHE
     Dosage: 1.75 ML, TWICE A DAY (ONCE IN MORNING AND ONCE IN AFTERNOON)
     Route: 065
     Dates: start: 201901
  2. MOTRIN [Suspect]
     Active Substance: IBUPROFEN
     Indication: TOOTHACHE
     Dosage: UNK
     Route: 065
  3. IRON SUPPLEMENTS [Concomitant]
     Active Substance: IRON
     Indication: IRON DEFICIENCY
     Dosage: 2 INHALES, ONCE A DAY
     Route: 045
     Dates: start: 20190128

REACTIONS (2)
  - Vomiting [Recovered/Resolved]
  - Haematochezia [Not Recovered/Not Resolved]

NARRATIVE: CASE EVENT DATE: 20190131
